FAERS Safety Report 4883149-9 (Version None)
Quarter: 2006Q1

REPORT INFORMATION
  Report Type: 
  Country: None (occurrence: None)
  Receive Date: 20060118
  Receipt Date: 20060103
  Transmission Date: 20060701
  Serious: Yes (Other)
  Sender: FDA-Public Use
  Company Number: GB-JNJFOC-20051105226

PATIENT
  Sex: Male
  Weight: 50 kg

DRUGS (2)
  1. CONCERTA [Suspect]
     Route: 048
     Dates: start: 20050704, end: 20051118
  2. CONCERTA [Suspect]
     Route: 048
     Dates: start: 20050704, end: 20051118

REACTIONS (2)
  - ASTHENOPIA [None]
  - PHOTOPHOBIA [None]
